FAERS Safety Report 8288110-2 (Version None)
Quarter: 2012Q2

REPORT INFORMATION
  Report Type: 
  Country: None (occurrence: None)
  Receive Date: 20120416
  Receipt Date: 20120403
  Transmission Date: 20120825
  Serious: Yes (Death, Other)
  Sender: FDA-Public Use
  Company Number: US-ELI_LILLY_AND_COMPANY-US201203009383

PATIENT
  Age: 73 Year
  Sex: Female

DRUGS (1)
  1. FORTEO [Suspect]
     Indication: OSTEOPOROSIS
     Dosage: 20 UG, QD
     Dates: start: 20070101

REACTIONS (10)
  - BONE SARCOMA [None]
  - SKIN CANCER [None]
  - LUNG NEOPLASM [None]
  - SKIN LESION [None]
  - ABDOMINAL PAIN [None]
  - VOMITING [None]
  - COUGH [None]
  - DEATH [None]
  - GASTRIC NEOPLASM [None]
  - NEOPLASM [None]
